FAERS Safety Report 5053473-8 (Version None)
Quarter: 2006Q3

REPORT INFORMATION
  Report Type: 
  Country: None (occurrence: None)
  Receive Date: 20060712
  Receipt Date: 20060628
  Transmission Date: 20061208
  Serious: Yes (Death)
  Sender: FDA-Public Use
  Company Number: 2006081727

PATIENT
  Age: 40 Year
  Sex: Male

DRUGS (1)
  1. TRIAZOLAM [Suspect]
     Indication: DRUG USE FOR UNKNOWN INDICATION

REACTIONS (9)
  - BLISTER [None]
  - BRAIN OEDEMA [None]
  - BRONCHOPNEUMONIA [None]
  - DRUG TOXICITY [None]
  - HAEMORRHAGE SUBCUTANEOUS [None]
  - INTRACARDIAC THROMBUS [None]
  - PULMONARY HAEMORRHAGE [None]
  - PULMONARY OEDEMA [None]
  - SKIN EXFOLIATION [None]
